FAERS Safety Report 4834886-3 (Version None)
Quarter: 2005Q4

REPORT INFORMATION
  Report Type: 
  Country: None (occurrence: None)
  Receive Date: 20051115
  Receipt Date: 20051031
  Transmission Date: 20060501
  Serious: Yes (Death)
  Sender: FDA-Public Use
  Company Number: 430010L05USA

PATIENT
  Age: 44 Year
  Sex: Male

DRUGS (3)
  1. MITOXANTRONE [Suspect]
     Indication: MYELOID LEUKAEMIA
     Dosage: 80 MG/M2, 1 IN 1 DAYS
  2. CYTARABINE [Suspect]
     Indication: MYELOID LEUKAEMIA
     Dosage: 3000 MG/M2, 1 IN 1 DAYS
  3. ETOPOSIDE [Suspect]
     Indication: MYELOID LEUKAEMIA
     Dosage: 150 MG/M2, 1 IN 2 DAYS

REACTIONS (8)
  - DIALYSIS [None]
  - DYSPNOEA [None]
  - GASTROINTESTINAL HAEMORRHAGE [None]
  - HEPATIC FAILURE [None]
  - MULTI-ORGAN FAILURE [None]
  - PULMONARY HAEMORRHAGE [None]
  - RENAL FAILURE ACUTE [None]
  - WERNER'S SYNDROME [None]
